FAERS Safety Report 9175486 (Version 4)
Quarter: 2013Q3

REPORT INFORMATION
  Report Type: Report from Study
  Country: PL (occurrence: PL)
  Receive Date: 20130320
  Receipt Date: 20130730
  Transmission Date: 20140515
  Serious: Yes (Hospitalization, Other)
  Sender: FDA-Public Use
  Company Number: PL-VERTEX PHARMACEUTICALS INC.-2013-003534

PATIENT
  Age: 50 Year
  Sex: Female
  Weight: 70.7 kg

DRUGS (16)
  1. VX-222 [Suspect]
     Indication: HEPATITIS C
     Dosage: 400 MG, BID
     Route: 048
     Dates: start: 20121220, end: 20130313
  2. VX-950 (TELAPREVIR) [Suspect]
     Indication: HEPATITIS C
     Dosage: 1125 MG, BID
     Route: 048
     Dates: start: 20121220, end: 20130313
  3. Z-RIBAVIRIN [Suspect]
     Indication: HEPATITIS C
     Dosage: 600 MG, BID
     Route: 048
     Dates: start: 20121220, end: 20130320
  4. Z-PEGYLATED INTERFERON-2A [Suspect]
     Indication: HEPATITIS C
     Dosage: 180 ?G, QW
     Route: 058
     Dates: start: 20121220, end: 20130320
  5. MILURIT [Concomitant]
     Indication: HYPERURICAEMIA
     Dosage: 100 MG, UNK
  6. AVEDOL [Concomitant]
     Indication: PORTAL HYPERTENSION
     Dosage: 25 MG, UNK
  7. KALISOL [Concomitant]
     Indication: HYPOKALAEMIA
     Dosage: 750 MG, UNK
  8. ANESTELOC [Concomitant]
     Indication: PROPHYLAXIS
     Dosage: 20 MG, UNK
  9. CODIPAR [Concomitant]
     Indication: PYREXIA
     Dosage: 500 UNK, UNK
  10. CYCLONAMINE [Concomitant]
     Indication: THROMBOCYTOPENIA
     Dosage: 250 MG, UNK
  11. HEMOFER PROLONGATUM [Concomitant]
     Indication: ANAEMIA
     Dosage: UNK
  12. CLEMASTIN [Concomitant]
     Indication: ALLERGY PROPHYLAXIS
     Dosage: 1 MG, UNK
  13. FLOXAL [Concomitant]
     Indication: CONJUNCTIVITIS
     Dosage: UNK
  14. ACIDUM FOLICUM [Concomitant]
     Indication: ANAEMIA
     Dosage: 15 MG, UNK
  15. NIVESTIM [Concomitant]
     Indication: NEUTROPENIA
     Dosage: UNK
  16. SODIUM CHLORIDE [Concomitant]
     Indication: DEHYDRATION
     Dosage: 500 ML, UNK

REACTIONS (4)
  - Pancytopenia [Recovered/Resolved]
  - Dehydration [Recovered/Resolved]
  - Diarrhoea [Recovered/Resolved]
  - Ascites [Recovered/Resolved]
